FAERS Safety Report 21925180 (Version 1)
Quarter: 2023Q1

REPORT INFORMATION
  Report Type: Spontaneous
  Country: US (occurrence: US)
  Receive Date: 20230130
  Receipt Date: 20230130
  Transmission Date: 20230417
  Serious: No
  Sender: FDA-Public Use
  Company Number: US-TAKEDA-2023TUS010151

PATIENT
  Sex: Female
  Weight: 64 kg

DRUGS (3)
  1. VYVANSE [Suspect]
     Active Substance: LISDEXAMFETAMINE DIMESYLATE
     Indication: Attention deficit hyperactivity disorder
     Dosage: 10 MILLIGRAM
     Route: 065
     Dates: start: 20230125
  2. PROZAC [Concomitant]
     Active Substance: FLUOXETINE HYDROCHLORIDE
     Indication: Depressed mood
     Dosage: 20 MILLIGRAM
     Route: 065
  3. CEFDINIR [Concomitant]
     Active Substance: CEFDINIR
     Indication: Sinusitis
     Dosage: UNK UNK, BID
     Route: 065

REACTIONS (2)
  - Crying [Unknown]
  - Therapeutic response shortened [Unknown]
